FAERS Safety Report 12769920 (Version 1)
Quarter: 2016Q3

REPORT INFORMATION
  Report Type: Spontaneous
  Country: SE (occurrence: SE)
  Receive Date: 20160922
  Receipt Date: 20160922
  Transmission Date: 20161109
  Serious: Yes (Other)
  Sender: FDA-Public Use
  Company Number: SE-CONCORDIA PHARMACEUTICALS INC.-GSH201609-004677

PATIENT
  Age: 76 Year
  Sex: Male

DRUGS (1)
  1. ALFUZOSIN 10 MG MYLAN [Suspect]
     Active Substance: ALFUZOSIN
     Route: 048

REACTIONS (1)
  - Seborrhoeic keratosis [Recovered/Resolved]
